FAERS Safety Report 15471237 (Version 1)
Quarter: 2018Q4

REPORT INFORMATION
  Report Type: Spontaneous
  Country: US (occurrence: US)
  Receive Date: 20181006
  Receipt Date: 20181006
  Transmission Date: 20190205
  Serious: No
  Sender: FDA-Public Use
  Company Number: US-009507513-1809USA012869

PATIENT
  Age: 40 Year
  Sex: Female

DRUGS (11)
  1. LEUPROLIDE [Concomitant]
     Active Substance: LEUPROLIDE
  2. ESTRADIOL. [Concomitant]
     Active Substance: ESTRADIOL
  3. PROMETRIUM [Concomitant]
     Active Substance: PROGESTERONE
  4. OVIDREL [Concomitant]
     Active Substance: CHORIOGONADOTROPIN ALFA
  5. ENDOMETRIN [Concomitant]
     Active Substance: PROGESTERONE
  6. FOLLISTIM [Suspect]
     Active Substance: FOLLITROPIN
     Indication: INFERTILITY FEMALE
     Dosage: 300 UNITS, AS DIRECTED
     Route: 058
     Dates: start: 20171208
  7. METHYLPRED ORAL [Concomitant]
  8. IRON (UNSPECIFIED) (+) MINERALS (UNSPECIFIED) (+) VITAMINS (UNSPECIFIE [Concomitant]
     Active Substance: IRON\MINERALS\VITAMINS
  9. AZITHROMYCIN ANHYDROUS. [Concomitant]
     Active Substance: AZITHROMYCIN ANHYDROUS
  10. ESTRACE [Concomitant]
     Active Substance: ESTRADIOL
  11. PROGESTERONE. [Concomitant]
     Active Substance: PROGESTERONE

REACTIONS (1)
  - Urticaria [Unknown]

NARRATIVE: CASE EVENT DATE: 20180916
